FAERS Safety Report 25544058 (Version 1)
Quarter: 2025Q3

REPORT INFORMATION
  Report Type: Spontaneous
  Country: US (occurrence: None)
  Receive Date: 20250711
  Receipt Date: 20250711
  Transmission Date: 20251020
  Serious: No
  Sender: FDA-CTU
  Company Number: None

PATIENT
  Age: 51 Year
  Sex: Male
  Weight: 136 kg

DRUGS (1)
  1. PROCHLORPERAZINE EDISYLATE [Suspect]
     Active Substance: PROCHLORPERAZINE EDISYLATE
     Indication: Nausea
     Route: 042
     Dates: start: 20250711, end: 20250711

REACTIONS (3)
  - Dialysis [None]
  - Agitation [None]
  - Claustrophobia [None]

NARRATIVE: CASE EVENT DATE: 20250711
